FAERS Safety Report 17265298 (Version 2)
Quarter: 2020Q1

REPORT INFORMATION
  Report Type: Spontaneous
  Country: JP (occurrence: JP)
  Receive Date: 20200114
  Receipt Date: 20200123
  Transmission Date: 20200409
  Serious: Yes (Other)
  Sender: FDA-Public Use
  Company Number: JP-LUPIN PHARMACEUTICALS INC.-2020-00088

PATIENT
  Age: 69 Year
  Sex: Female

DRUGS (1)
  1. LANTHANUM CARBONATE. [Suspect]
     Active Substance: LANTHANUM CARBONATE
     Indication: PROPHYLAXIS
     Dosage: 750 MILLIGRAM, QD
     Route: 065

REACTIONS (1)
  - Foreign body in gastrointestinal tract [Recovered/Resolved]
